FAERS Safety Report 9387028 (Version 1)
Quarter: 2013Q3

REPORT INFORMATION
  Report Type: Other
  Country: FR (occurrence: FR)
  Receive Date: 20130708
  Receipt Date: 20130708
  Transmission Date: 20140515
  Serious: Yes (Disabling, Other)
  Sender: FDA-Public Use
  Company Number: FR-MPIJNJ-2013-05073

PATIENT
  Sex: 0

DRUGS (16)
  1. VELCADE [Suspect]
     Indication: PLASMA CELL MYELOMA
     Dosage: 1.3 MG/M2, MONTHLY
     Route: 042
     Dates: start: 201209, end: 201301
  2. ZOMETA [Suspect]
     Indication: PRODUCT USED FOR UNKNOWN INDICATION
     Dosage: 4 MG, MONTHLY
     Route: 042
     Dates: start: 20120831, end: 201305
  3. REVLIMID [Concomitant]
     Dosage: 25 MG, UNK
     Dates: start: 201209
  4. DEXAMETHASONE [Concomitant]
     Dosage: UNK
     Dates: start: 201209
  5. PENTACARINAT [Concomitant]
     Indication: PANCYTOPENIA
     Route: 055
  6. IMMUNOGLOBULIN [Concomitant]
     Indication: HYPOGAMMAGLOBULINAEMIA
     Dosage: 25 MG, UNK
     Route: 042
     Dates: start: 20130219
  7. DAFALGAN /00020001/ [Concomitant]
  8. ARANESP [Concomitant]
     Dosage: UNK, PRN
  9. ARIXTRA [Concomitant]
     Indication: PHLEBITIS
  10. VALACICLOVIR [Concomitant]
  11. AMYCOR                             /00806601/ [Concomitant]
     Route: 061
  12. PARATHYROID HORMONE [Concomitant]
  13. CALCIUM + VITAMIN D [Concomitant]
  14. LYRICA [Concomitant]
     Indication: NEUROPATHY PERIPHERAL
     Dosage: 50 MG, UNK
  15. LYRICA [Concomitant]
     Dosage: 175 MG, UNK
  16. DUROGESIC [Concomitant]

REACTIONS (3)
  - Neuropathy peripheral [Recovering/Resolving]
  - Osteonecrosis of jaw [Unknown]
  - Aplasia [Unknown]
